FAERS Safety Report 19556822 (Version 1)
Quarter: 2021Q3

REPORT INFORMATION
  Report Type: Spontaneous
  Country: CN (occurrence: CN)
  Receive Date: 20210715
  Receipt Date: 20210715
  Transmission Date: 20211014
  Serious: Yes (Other)
  Sender: FDA-Public Use
  Company Number: CN-ELI_LILLY_AND_COMPANY-CN202107004116

PATIENT
  Age: 57 Year
  Sex: Male
  Weight: 61 kg

DRUGS (4)
  1. SODIUM CHLORIDE. [Concomitant]
     Active Substance: SODIUM CHLORIDE
     Dosage: 100 ML, DAILY
     Route: 041
     Dates: start: 20210509, end: 20210516
  2. GEMZAR [Suspect]
     Active Substance: GEMCITABINE HYDROCHLORIDE
     Indication: NASOPHARYNGEAL TUMOUR
     Dosage: 1 G, DAILY
     Route: 041
     Dates: start: 20210509, end: 20210516
  3. CISPLATIN. [Suspect]
     Active Substance: CISPLATIN
     Indication: NASOPHARYNGEAL TUMOUR
     Dosage: 40 MG, DAILY
     Route: 041
     Dates: start: 20210509, end: 20210511
  4. SODIUM CHLORIDE. [Concomitant]
     Active Substance: SODIUM CHLORIDE
     Indication: NASOPHARYNGEAL TUMOUR
     Dosage: 500 ML, DAILY
     Route: 041
     Dates: start: 20210509, end: 20210511

REACTIONS (2)
  - Full blood count decreased [Recovering/Resolving]
  - Off label use [Unknown]

NARRATIVE: CASE EVENT DATE: 20210509
